FAERS Safety Report 8522102-0 (Version None)
Quarter: 2012Q3

REPORT INFORMATION
  Report Type: 
  Country: None (occurrence: None)
  Receive Date: 20120709
  Receipt Date: 20120702
  Transmission Date: 20120928
  Serious: Yes (Other)
  Sender: FDA-Public Use
  Company Number: PHHY2012CN054064

PATIENT
  Age: 82 Year
  Sex: Female

DRUGS (1)
  1. VISUDYNE [Suspect]
     Dates: start: 20110620, end: 20110620

REACTIONS (3)
  - BLINDNESS [None]
  - CATARACT [None]
  - CHOROIDAL NEOVASCULARISATION [None]
